FAERS Safety Report 11445607 (Version 1)
Quarter: 2015Q3

REPORT INFORMATION
  Report Type: Spontaneous
  Country: US (occurrence: US)
  Receive Date: 20150902
  Receipt Date: 20150902
  Transmission Date: 20151125
  Serious: No
  Sender: FDA-Public Use
  Company Number: US-BANPHARM-20154107

PATIENT
  Age: 56 Year
  Sex: Female
  Weight: 86.18 kg

DRUGS (3)
  1. MAGNESIUM [Concomitant]
     Active Substance: MAGNESIUM
     Dosage: 400 MG, QD,
  2. PROGESTERONE CAPSULES 200 MG [Suspect]
     Active Substance: PROGESTERONE
     Indication: POSTMENOPAUSE
     Dosage: 200 MG; 1X/DAY;
     Route: 048
     Dates: start: 201506
  3. ZOVIRAX [Concomitant]
     Active Substance: ACYCLOVIR
     Dosage: 500 MG, BID,

REACTIONS (2)
  - Drug ineffective [Not Recovered/Not Resolved]
  - Product substitution issue [Not Recovered/Not Resolved]

NARRATIVE: CASE EVENT DATE: 201506
